FAERS Safety Report 25043717 (Version 1)
Quarter: 2025Q1

REPORT INFORMATION
  Report Type: Other
  Country: ES (occurrence: ES)
  Receive Date: 20250306
  Receipt Date: 20250306
  Transmission Date: 20250408
  Serious: Yes (Hospitalization)
  Sender: ZYDUS PHARM
  Company Number: None

PATIENT

DRUGS (2)
  1. ACETAMINOPHEN [Suspect]
     Active Substance: ACETAMINOPHEN
     Indication: Headache
     Route: 048
     Dates: start: 20250114, end: 20250114
  2. CREATINE [Suspect]
     Active Substance: CREATINE
     Indication: Muscle building therapy
     Route: 048
     Dates: start: 20250106, end: 20250116

REACTIONS (3)
  - Coagulopathy [Recovered/Resolved]
  - Hyperbilirubinaemia [Recovered/Resolved]
  - Hepatocellular injury [Recovering/Resolving]

NARRATIVE: CASE EVENT DATE: 20250116
